FAERS Safety Report 9381443 (Version 1)
Quarter: 2013Q3

REPORT INFORMATION
  Report Type: Report from Study
  Country: US (occurrence: US)
  Receive Date: 20130703
  Receipt Date: 20130703
  Transmission Date: 20140515
  Serious: Yes (Other)
  Sender: FDA-Public Use
  Company Number: PHEH2013US014075

PATIENT
  Age: 54 Year
  Sex: Female

DRUGS (3)
  1. GLEEVEC [Suspect]
     Indication: LEUKAEMIA
     Dosage: 400 MG,DAILY
     Route: 048
     Dates: start: 20071227
  2. MULTIVITAMINS [Concomitant]
     Dosage: UNK UKN, UNK
  3. CALCIUM [Concomitant]
     Dosage: UNK UKN, UNK

REACTIONS (1)
  - Eye haemorrhage [Unknown]
